FAERS Safety Report 13640294 (Version 7)
Quarter: 2018Q1

REPORT INFORMATION
  Report Type: Report from Study
  Country: KR (occurrence: KR)
  Receive Date: 20170610
  Receipt Date: 20180227
  Transmission Date: 20180508
  Serious: Yes (Hospitalization, Other)
  Sender: FDA-Public Use
  Company Number: KR-BRISTOL-MYERS SQUIBB COMPANY-BMS-2017-049441

PATIENT
  Age: 69 Year
  Sex: Male

DRUGS (27)
  1. PANTOLOC                           /01263201/ [Concomitant]
     Active Substance: PANTOPRAZOLE SODIUM
     Indication: GASTRIC ULCER
     Dosage: 120 MG, UNK
     Route: 042
     Dates: start: 20170529, end: 20170529
  2. PANTOLOC                           /01263201/ [Concomitant]
     Active Substance: PANTOPRAZOLE SODIUM
     Indication: DUODENAL ULCER
     Dosage: 120 MG, UNK
     Route: 042
     Dates: start: 20170530, end: 20170530
  3. HUONS TRANEXAMIC ACID [Concomitant]
     Indication: OESOPHAGEAL VARICES HAEMORRHAGE
     Dosage: UNK
     Route: 042
     Dates: start: 20170529, end: 20170529
  4. HUMULIN R [Concomitant]
     Active Substance: INSULIN HUMAN
     Indication: BLOOD GLUCOSE INCREASED
     Dosage: UNK
     Route: 042
     Dates: start: 20170529, end: 20170529
  5. DUPHALAC [Concomitant]
     Active Substance: LACTULOSE
     Indication: HEPATIC ENCEPHALOPATHY
     Dosage: 300 ML, UNK
     Route: 065
  6. LEGALON [Concomitant]
     Active Substance: DIETARY SUPPLEMENT\HERBALS\MILK THISTLE
     Indication: LIVER DISORDER
     Dosage: 1 DF, UNK
     Route: 048
     Dates: start: 20170502, end: 20170612
  7. CAFSOL [Concomitant]
     Indication: PRODUCT USED FOR UNKNOWN INDICATION
     Dosage: UNK
     Route: 042
     Dates: start: 20170604, end: 20170608
  8. GLYPRESSIN [Concomitant]
     Active Substance: TERLIPRESSIN
     Indication: OESOPHAGEAL VARICES HAEMORRHAGE
     Dosage: UNK
     Route: 042
     Dates: start: 20170529, end: 20170531
  9. BOTROPASE [Concomitant]
     Active Substance: BATROXOBIN
     Indication: HAEMORRHAGE
     Dosage: UNK
     Route: 042
     Dates: start: 20170529, end: 20170605
  10. HEPA-MERZ INFUSION [Concomitant]
     Indication: CHRONIC HEPATITIS C
     Dosage: UNK
     Route: 042
     Dates: start: 20170530, end: 20170530
  11. PACETA [Concomitant]
     Indication: PRODUCT USED FOR UNKNOWN INDICATION
     Dosage: UNK
     Route: 065
  12. BEECOM [Concomitant]
     Indication: PRODUCT USED FOR UNKNOWN INDICATION
     Dosage: 1 DF, UNK
     Route: 048
     Dates: start: 20170206, end: 20170417
  13. LEGALON 140 CAP [Concomitant]
     Indication: LIVER DISORDER
     Dosage: 140 MG, UNK
     Route: 048
     Dates: start: 20170206, end: 20170417
  14. TRISONEKIT [Concomitant]
     Active Substance: CEFTRIAXONE SODIUM
     Indication: RESPIRATORY TRACT INFECTION
     Dosage: UNK
     Route: 042
     Dates: start: 20170529, end: 20170608
  15. MUCOSTEN [Concomitant]
     Indication: PRODUCT USED FOR UNKNOWN INDICATION
     Dosage: UNK
     Route: 065
  16. DACLATASVIR DIHYDROCHLORIDE [Suspect]
     Active Substance: DACLATASVIR DIHYDROCHLORIDE
     Indication: HEPATITIS C
     Dosage: 1 TAB, UNK
     Route: 048
     Dates: start: 20161228, end: 20170614
  17. NORPIN                             /00127501/ [Concomitant]
     Indication: HYPOTENSION
     Dosage: UNK
     Route: 042
     Dates: start: 20170529, end: 20170529
  18. PENIRAMIN [Concomitant]
     Indication: HYPERSENSITIVITY
     Dosage: UNK
     Route: 042
     Dates: start: 20170529, end: 20170529
  19. MOSAONE [Concomitant]
     Indication: DYSPEPSIA
     Dosage: UNK
     Route: 048
     Dates: start: 20170606, end: 20170606
  20. GASTER [Concomitant]
     Active Substance: FAMOTIDINE
     Indication: PRODUCT USED FOR UNKNOWN INDICATION
     Dosage: UNK
     Route: 065
  21. ASUNAPREVIR [Suspect]
     Active Substance: ASUNAPREVIR
     Indication: HEPATITIS C
     Dosage: 2 DF, UNK
     Route: 048
     Dates: start: 20161228, end: 20170614
  22. PLASMA-LYTE 148 [Concomitant]
     Active Substance: MAGNESIUM CHLORIDE\POTASSIUM CHLORIDE\SODIUM ACETATE\SODIUM CHLORIDE\SODIUM GLUCONATE
     Indication: PRODUCT USED FOR UNKNOWN INDICATION
     Dosage: 1000 UNK, UNK
     Route: 042
     Dates: start: 20170529, end: 20170606
  23. PANTOLOC                           /01263201/ [Concomitant]
     Active Substance: PANTOPRAZOLE SODIUM
     Indication: PRODUCT USED FOR UNKNOWN INDICATION
     Dosage: 80 MG, UNK
     Route: 042
     Dates: start: 20170531, end: 20170531
  24. MACPERAN [Concomitant]
     Active Substance: METOCLOPRAMIDE HYDROCHLORIDE
     Indication: VOMITING
     Dosage: UNK
     Route: 042
     Dates: start: 20170530, end: 20170531
  25. CENTRUM SILVER ADVANCE                  /02363801/ [Concomitant]
     Indication: PRODUCT USED FOR UNKNOWN INDICATION
     Route: 065
  26. ARONAMIN [Concomitant]
     Indication: PRODUCT USED FOR UNKNOWN INDICATION
     Dosage: UNK
     Route: 048
     Dates: start: 20170529, end: 20170612
  27. SMOFKABIVEN PERIPHERAL [Concomitant]
     Indication: PRODUCT USED FOR UNKNOWN INDICATION
     Dosage: 1206 ML, UNK
     Route: 042
     Dates: start: 20170601, end: 20170601

REACTIONS (3)
  - Abdominal mass [Unknown]
  - Gastrointestinal haemorrhage [Recovered/Resolved]
  - Nausea [Unknown]

NARRATIVE: CASE EVENT DATE: 20170529
